FAERS Safety Report 10934378 (Version 1)
Quarter: 2015Q1

REPORT INFORMATION
  Report Type: Report from Study
  Country: US (occurrence: US)
  Receive Date: 20150320
  Receipt Date: 20150320
  Transmission Date: 20150721
  Serious: Yes (Other)
  Sender: FDA-Public Use
  Company Number: US-ASTELLAS-2015US009056

PATIENT

DRUGS (1)
  1. ERLOTINIB [Suspect]
     Active Substance: ERLOTINIB
     Indication: RENAL CELL CARCINOMA
     Dosage: 28-DAY COURSE (DAILY)
     Route: 065

REACTIONS (1)
  - Prothrombin time prolonged [Unknown]
